FAERS Safety Report 12047176 (Version 1)
Quarter: 2016Q1

REPORT INFORMATION
  Report Type: Spontaneous
  Country: FR (occurrence: FR)
  Receive Date: 20160209
  Receipt Date: 20160209
  Transmission Date: 20160526
  Serious: Yes (Hospitalization)
  Sender: FDA-Public Use
  Company Number: FR-009507513-1602FRA003665

PATIENT
  Age: 82 Year
  Sex: Male

DRUGS (5)
  1. GLICLAZIDE [Suspect]
     Active Substance: GLICLAZIDE
     Indication: TYPE 2 DIABETES MELLITUS
     Dosage: UNK
     Route: 048
     Dates: end: 20151229
  2. KARDEGIC [Concomitant]
     Active Substance: ASPIRIN LYSINE
  3. MOVICOL [Concomitant]
     Active Substance: POLYETHYLENE GLYCOL 3350\POTASSIUM CHLORIDE\SODIUM BICARBONATE\SODIUM CHLORIDE
  4. JANUMET [Suspect]
     Active Substance: METFORMIN HYDROCHLORIDE\SITAGLIPTIN PHOSPHATE
     Indication: TYPE 2 DIABETES MELLITUS
     Dosage: 50/100 MG
     Route: 048
     Dates: end: 20151229
  5. SPAGULAX [Concomitant]
     Active Substance: PLANTAGO OVATA SEED

REACTIONS (2)
  - Abnormal behaviour [Not Recovered/Not Resolved]
  - Aggression [Not Recovered/Not Resolved]
